FAERS Safety Report 15629893 (Version 3)
Quarter: 2018Q4

REPORT INFORMATION
  Report Type: Spontaneous
  Country: US (occurrence: US)
  Receive Date: 20181117
  Receipt Date: 20181210
  Transmission Date: 20190205
  Serious: No
  Sender: FDA-Public Use
  Company Number: US-JNJFOC-20181036694

PATIENT
  Sex: Female
  Weight: 81.65 kg

DRUGS (17)
  1. GABAPENTIN. [Concomitant]
     Active Substance: GABAPENTIN
     Indication: FIBROMYALGIA
     Dosage: 400 MG, 2 CAPSULES TWICE A DAY
     Route: 065
     Dates: start: 20180923
  2. TETRACYCLINE [Concomitant]
     Active Substance: TETRACYCLINE
     Indication: SKIN DISORDER
     Route: 065
     Dates: start: 20180902
  3. INVEGA SUSTENNA [Suspect]
     Active Substance: PALIPERIDONE PALMITATE
     Indication: AFFECTIVE DISORDER
     Route: 030
     Dates: start: 201804
  4. SENNA [Concomitant]
     Active Substance: SENNA LEAF\SENNOSIDES\SENNOSIDES A AND B
     Indication: SLEEP DISORDER THERAPY
     Dosage: AT BEDTIME
     Route: 065
     Dates: start: 20180330
  5. HYDROXYZINE PAMOATE. [Concomitant]
     Active Substance: HYDROXYZINE PAMOATE
     Indication: ANXIETY
     Dosage: 25 MG; 1 TO 2 CAPSULES FOUR TIMES
     Route: 065
     Dates: start: 20180827
  6. HYDROXYZINE PAMOATE. [Concomitant]
     Active Substance: HYDROXYZINE PAMOATE
     Indication: TENSION
     Dosage: 25 MG; 1 TO 2 CAPSULES FOUR TIMES
     Route: 065
     Dates: start: 20180827
  7. CLINDAMYCIN. [Concomitant]
     Active Substance: CLINDAMYCIN
     Indication: SKIN DISORDER
     Route: 061
     Dates: start: 20180924
  8. INVEGA SUSTENNA [Suspect]
     Active Substance: PALIPERIDONE PALMITATE
     Indication: BIPOLAR DISORDER
     Route: 030
     Dates: start: 201804
  9. INVEGA SUSTENNA [Suspect]
     Active Substance: PALIPERIDONE PALMITATE
     Indication: AFFECTIVE DISORDER
     Route: 030
     Dates: start: 20180903
  10. VALACYCLOVIR [Concomitant]
     Active Substance: VALACYCLOVIR HYDROCHLORIDE
     Indication: VIRAL INFECTION
     Route: 065
     Dates: start: 20180906
  11. BUPROPION. [Concomitant]
     Active Substance: BUPROPION
     Indication: ANTIDEPRESSANT THERAPY
     Route: 065
     Dates: start: 20180904
  12. TRAZODONE [Concomitant]
     Active Substance: TRAZODONE HYDROCHLORIDE
     Indication: SLEEP DISORDER THERAPY
     Dosage: 1 OR 2 PER NIGHT AS NEEDED
     Route: 065
     Dates: start: 20180907
  13. DISULFIRAM. [Concomitant]
     Active Substance: DISULFIRAM
     Indication: PROPHYLAXIS
     Route: 065
     Dates: start: 20180802
  14. OLANZAPINE. [Concomitant]
     Active Substance: OLANZAPINE
     Indication: PSYCHOTIC DISORDER
     Route: 065
     Dates: start: 20180426
  15. INVEGA SUSTENNA [Suspect]
     Active Substance: PALIPERIDONE PALMITATE
     Indication: BIPOLAR DISORDER
     Route: 030
     Dates: start: 20180903
  16. DOCUSATE SODIUM. [Concomitant]
     Active Substance: DOCUSATE SODIUM
     Indication: CONSTIPATION
     Dosage: AS NEEDED
     Route: 065
     Dates: start: 20180926
  17. TOPIRAMATE. [Concomitant]
     Active Substance: TOPIRAMATE
     Indication: SEIZURE PROPHYLAXIS
     Route: 048
     Dates: start: 20180904

REACTIONS (7)
  - Agitation [Unknown]
  - Off label use [Unknown]
  - Belligerence [Unknown]
  - Weight increased [Unknown]
  - Product use in unapproved indication [Unknown]
  - Insomnia [Unknown]
  - Therapeutic response decreased [Unknown]

NARRATIVE: CASE EVENT DATE: 2018
